FAERS Safety Report 6682754-7 (Version None)
Quarter: 2010Q2

REPORT INFORMATION
  Report Type: 
  Country: None (occurrence: None)
  Receive Date: 20100415
  Receipt Date: 20100412
  Transmission Date: 20101027
  Serious: Yes (Other)
  Sender: FDA-Public Use
  Company Number: US-ELI_LILLY_AND_COMPANY-US200812004665

PATIENT
  Sex: Female
  Weight: 58.957 kg

DRUGS (2)
  1. HUMALOG [Suspect]
     Indication: DIABETES MELLITUS
  2. HUMALOG [Suspect]

REACTIONS (12)
  - BLINDNESS UNILATERAL [None]
  - CATARACT [None]
  - DRUG DISPENSING ERROR [None]
  - EYE HAEMORRHAGE [None]
  - FEAR [None]
  - MEDICATION ERROR [None]
  - MEMORY IMPAIRMENT [None]
  - PHYSICAL PRODUCT LABEL ISSUE [None]
  - RETINAL VASCULAR OCCLUSION [None]
  - STRESS [None]
  - VISUAL ACUITY REDUCED [None]
  - VISUAL IMPAIRMENT [None]
